FAERS Safety Report 8371642-6 (Version None)
Quarter: 2012Q2

REPORT INFORMATION
  Report Type: 
  Country: None (occurrence: None)
  Receive Date: 20120518
  Receipt Date: 20120510
  Transmission Date: 20120825
  Serious: Yes (Other)
  Sender: FDA-Public Use
  Company Number: JP-FRI-1000029225

PATIENT
  Sex: Female
  Weight: 45 kg

DRUGS (8)
  1. FLUVOXAMINE MALEATE [Concomitant]
     Indication: DEPRESSION
     Dosage: 150 MG
     Route: 048
     Dates: start: 20120116, end: 20120326
  2. ESTAZOLAM [Concomitant]
     Indication: INSOMNIA
     Dosage: 2 MG
     Route: 048
     Dates: start: 20091022
  3. LEXAPRO [Suspect]
     Dosage: 20 MG
     Route: 048
     Dates: start: 20120301, end: 20120308
  4. RILYFTER [Concomitant]
     Indication: INSOMNIA
     Dosage: 10 MG
     Route: 048
     Dates: start: 20110714, end: 20120315
  5. LEXAPRO [Suspect]
     Indication: DEPRESSION
     Dosage: 10 MG
     Route: 048
     Dates: start: 20120216, end: 20120229
  6. EVAMYL [Concomitant]
     Indication: INSOMNIA
     Dosage: 2 MG
     Route: 048
     Dates: start: 20110613
  7. BROTIZOLAM [Concomitant]
     Indication: INSOMNIA
     Dosage: 0.25 MG
     Route: 048
     Dates: start: 20091116
  8. DIAZEPAM [Concomitant]
     Indication: ANXIETY
     Dosage: 15 MG
     Route: 048
     Dates: start: 20111116

REACTIONS (6)
  - TREMOR [None]
  - CONVULSION [None]
  - VOMITING [None]
  - FACIAL SPASM [None]
  - DECREASED APPETITE [None]
  - NAUSEA [None]
